FAERS Safety Report 23076118 (Version 1)
Quarter: 2023Q4

REPORT INFORMATION
  Report Type: Spontaneous
  Country: US (occurrence: None)
  Receive Date: 20231017
  Receipt Date: 20231017
  Transmission Date: 20240109
  Serious: Yes (Death, Other)
  Sender: FDA-Public Use
  Company Number: 2023A233941

PATIENT

DRUGS (9)
  1. FULVESTRANT [Suspect]
     Active Substance: FULVESTRANT
     Route: 030
     Dates: start: 20190401, end: 20191122
  2. PALBOCICLIB ISETHIONATE [Suspect]
     Active Substance: PALBOCICLIB ISETHIONATE
     Dates: start: 20190401, end: 20190430
  3. PALBOCICLIB ISETHIONATE [Suspect]
     Active Substance: PALBOCICLIB ISETHIONATE
     Dates: start: 20190705, end: 20190802
  4. PALBOCICLIB ISETHIONATE [Suspect]
     Active Substance: PALBOCICLIB ISETHIONATE
     Dates: start: 20190604, end: 20190625
  5. PALBOCICLIB ISETHIONATE [Suspect]
     Active Substance: PALBOCICLIB ISETHIONATE
     Dates: start: 20190501, end: 20190524
  6. EXEMESTANE [Suspect]
     Active Substance: EXEMESTANE
     Dates: start: 20191126, end: 20200414
  7. EVEROLIMUS [Suspect]
     Active Substance: EVEROLIMUS
     Dates: start: 20191126, end: 20200414
  8. ALPELISIB [Suspect]
     Active Substance: ALPELISIB
     Dates: start: 20201201, end: 20210401
  9. ERIBULIN [Suspect]
     Active Substance: ERIBULIN
     Dates: start: 20210415

REACTIONS (1)
  - Death [Fatal]

NARRATIVE: CASE EVENT DATE: 20220326
